FAERS Safety Report 5223663-X (Version None)
Quarter: 2007Q1

REPORT INFORMATION
  Report Type: 
  Country: None (occurrence: None)
  Receive Date: 20070130
  Receipt Date: 20070116
  Transmission Date: 20070707
  Serious: Yes (Other)
  Sender: FDA-Public Use
  Company Number: AUWYE172416JAN07

PATIENT
  Sex: Female
  Weight: 67 kg

DRUGS (3)
  1. EFFEXOR XR [Suspect]
     Indication: DEPRESSION
     Route: 048
     Dates: start: 20050909, end: 20061130
  2. EFFEXOR XR [Suspect]
     Route: 048
     Dates: start: 20061201, end: 20061204
  3. EFFEXOR XR [Suspect]
     Route: 048

REACTIONS (8)
  - ASTHENIA [None]
  - CRYING [None]
  - DRUG WITHDRAWAL SYNDROME [None]
  - HEADACHE [None]
  - INAPPROPRIATE SCHEDULE OF DRUG ADMINISTRATION [None]
  - PANIC ATTACK [None]
  - PHOTOPHOBIA [None]
  - VISION BLURRED [None]
